FAERS Safety Report 16632648 (Version 4)
Quarter: 2020Q4

REPORT INFORMATION
  Report Type: Spontaneous
  Country: GB (occurrence: GB)
  Receive Date: 20190725
  Receipt Date: 20201005
  Transmission Date: 20210113
  Serious: Yes (Hospitalization, Other)
  Sender: FDA-Public Use
  Company Number: GB-MYLANLABS-2019M1068567

PATIENT
  Age: 43 Year
  Sex: Female

DRUGS (13)
  1. WARFARIN [Suspect]
     Active Substance: WARFARIN
     Indication: ANTIPHOSPHOLIPID SYNDROME
     Dosage: UNK
     Route: 065
  2. AZATHIOPRINE                       /00001502/ [Concomitant]
     Active Substance: AZATHIOPRINE
     Indication: ACUTE KIDNEY INJURY
     Dosage: UNK
  3. MYCOPHENOLATE MOFETIL              /01275104/ [Concomitant]
     Active Substance: MYCOPHENOLATE MOFETIL
     Indication: LIVER DISORDER
     Dosage: UNK
  4. CYC 116 [Suspect]
     Active Substance: INVESTIGATIONAL PRODUCT
     Indication: ANTIPHOSPHOLIPID SYNDROME
     Dosage: UNK
  5. AZATHIOPRINE                       /00001502/ [Concomitant]
     Active Substance: AZATHIOPRINE
     Indication: ARTHRALGIA
     Dosage: UNK
  6. AZATHIOPRINE                       /00001502/ [Concomitant]
     Active Substance: AZATHIOPRINE
     Indication: VASCULITIS
     Dosage: UNK
  7. ACETYLSALICYLIC ACID [Suspect]
     Active Substance: ASPIRIN
     Indication: ANTIPHOSPHOLIPID SYNDROME
     Dosage: UNK
     Route: 065
  8. MYCOPHENOLATE MOFETIL              /01275104/ [Concomitant]
     Active Substance: MYCOPHENOLATE MOFETIL
     Indication: ARTHRALGIA
     Dosage: UNK
  9. PREDNISOLONE. [Suspect]
     Active Substance: PREDNISOLONE
     Indication: ANTIPHOSPHOLIPID SYNDROME
     Dosage: UNK
     Route: 065
  10. RITUXIMAB. [Suspect]
     Active Substance: RITUXIMAB
     Indication: ANTIPHOSPHOLIPID SYNDROME
     Dosage: UNK
  11. AZATHIOPRINE                       /00001502/ [Concomitant]
     Active Substance: AZATHIOPRINE
     Indication: LIVER DISORDER
     Dosage: UNK
  12. MYCOPHENOLATE MOFETIL              /01275104/ [Concomitant]
     Active Substance: MYCOPHENOLATE MOFETIL
     Indication: VASCULITIS
     Dosage: UNK
  13. MYCOPHENOLATE MOFETIL              /01275104/ [Concomitant]
     Active Substance: MYCOPHENOLATE MOFETIL
     Indication: ACUTE KIDNEY INJURY
     Dosage: UNK

REACTIONS (25)
  - International normalised ratio increased [Unknown]
  - Vasculitis [Unknown]
  - Pituitary haemorrhage [Unknown]
  - Hepatitis [Recovering/Resolving]
  - Haemorrhage [Recovering/Resolving]
  - Ocular vascular disorder [Recovered/Resolved]
  - Microangiopathic haemolytic anaemia [Recovered/Resolved]
  - Liver disorder [Recovered/Resolved]
  - Hypertensive crisis [Recovered/Resolved]
  - Retinal infarction [Recovered/Resolved]
  - Drug ineffective [Unknown]
  - Thrombosis [Unknown]
  - Pituitary infarction [Recovered/Resolved]
  - Condition aggravated [Recovered/Resolved]
  - Eye haemorrhage [Unknown]
  - Cerebellar haemorrhage [Recovering/Resolving]
  - Thrombotic stroke [Unknown]
  - Acute kidney injury [Recovered/Resolved]
  - Cerebrovascular accident [Recovered/Resolved]
  - Thrombocytopenia [Recovered/Resolved]
  - Proteinuria [Recovered/Resolved]
  - Vasculitic rash [Recovered/Resolved]
  - Arthralgia [Recovered/Resolved]
  - Haemorrhage intracranial [Unknown]
  - Cerebellar infarction [Recovered/Resolved]

NARRATIVE: CASE EVENT DATE: 2005
